FAERS Safety Report 24298736 (Version 1)
Quarter: 2024Q3

REPORT INFORMATION
  Report Type: Spontaneous
  Country: US (occurrence: None)
  Receive Date: 20240907
  Receipt Date: 20240907
  Transmission Date: 20241017
  Serious: No
  Sender: Public
  Company Number: None

PATIENT
  Sex: Female

DRUGS (4)
  1. CARBOPLATIN [Suspect]
     Active Substance: CARBOPLATIN
  2. FEMARA [Concomitant]
     Active Substance: LETROZOLE
  3. TAXOL [Concomitant]
     Active Substance: PACLITAXEL
  4. PACLITAXEL [Concomitant]
     Active Substance: PACLITAXEL

REACTIONS (2)
  - Infusion related hypersensitivity reaction [None]
  - Emotional distress [None]

NARRATIVE: CASE EVENT DATE: 20240415
